FAERS Safety Report 10673942 (Version 1)
Quarter: 2014Q4

REPORT INFORMATION
  Report Type: Spontaneous
  Country: US (occurrence: None)
  Receive Date: 20141222
  Receipt Date: 20141222
  Transmission Date: 20150529
  Serious: Yes (Hospitalization)
  Sender: FDA-Public Use
  Company Number: US-000743

PATIENT
  Age: 61 Year
  Sex: Female

DRUGS (9)
  1. FOLIC ACID. [Concomitant]
     Active Substance: FOLIC ACID
  2. GATTEX [Suspect]
     Active Substance: TEDUGLUTIDE\WATER
     Indication: SHORT-BOWEL SYNDROME
     Dosage: 0.3 ML QD, STREN/VOLUM: 03 ML/FREQU: ONCE DAILY SUBCUTANEOUS),
     Route: 058
     Dates: start: 20130618
  3. OPIUM TINCTURE [Concomitant]
     Active Substance: OPIUM TINCTURE
  4. LOPERAMIDE [Concomitant]
     Active Substance: LOPERAMIDE
  5. LEXAPRO [Concomitant]
     Active Substance: ESCITALOPRAM OXALATE
  6. METOPROLOL [Concomitant]
     Active Substance: METOPROLOL
  7. CLONAZEPAM. [Concomitant]
     Active Substance: CLONAZEPAM
  8. PRILOSEC [Concomitant]
     Active Substance: OMEPRAZOLE MAGNESIUM
  9. SOLUTIONS OF PARENTERAL NUTRITION [Concomitant]

REACTIONS (5)
  - Drug dose omission [None]
  - Diarrhoea [None]
  - Cholecystitis [None]
  - Abdominal discomfort [None]
  - Abdominal pain [None]

NARRATIVE: CASE EVENT DATE: 201306
